FAERS Safety Report 23488542 (Version 1)
Quarter: 2024Q1

REPORT INFORMATION
  Report Type: Spontaneous
  Country: US (occurrence: US)
  Receive Date: 20240206
  Receipt Date: 20240206
  Transmission Date: 20240410
  Serious: No
  Sender: FDA-Public Use
  Company Number: US-SA-SAC20240201000578

PATIENT
  Age: 15 Year
  Sex: Female

DRUGS (1)
  1. DUPIXENT [Suspect]
     Active Substance: DUPILUMAB
     Indication: Dermatitis atopic
     Dosage: DOSE AND FREQUENCY: - 300MG/ EVERY 14 DAYS
     Route: 058
     Dates: start: 202304

REACTIONS (3)
  - Injection site warmth [Unknown]
  - Injection site pain [Unknown]
  - Injection site erythema [Recovered/Resolved]
